FAERS Safety Report 13092461 (Version 1)
Quarter: 2017Q1

REPORT INFORMATION
  Report Type: Spontaneous
  Country: US (occurrence: US)
  Receive Date: 20170106
  Receipt Date: 20170106
  Transmission Date: 20170428
  Serious: No
  Sender: FDA-Public Use
  Company Number: US-JNJFOC-20161126099

PATIENT
  Age: 25 Year
  Sex: Female
  Weight: 68.04 kg

DRUGS (5)
  1. TYLENOL EXTRA STRENGTH [Suspect]
     Active Substance: ACETAMINOPHEN
     Indication: EAR INFECTION
     Route: 048
  2. TYLENOL EXTRA STRENGTH [Suspect]
     Active Substance: ACETAMINOPHEN
     Indication: EAR INFECTION
     Dosage: 1-2 CAPLETS, EVERY 6 HOURS
     Route: 048
     Dates: start: 20161121
  3. TYLENOL EXTRA STRENGTH [Suspect]
     Active Substance: ACETAMINOPHEN
     Indication: EAR INFECTION
     Route: 048
  4. PRENATAL VITAMINS [Concomitant]
     Active Substance: VITAMINS
     Indication: VITAMIN SUPPLEMENTATION
     Dosage: 4 MONTHS
     Route: 065
  5. AMOXICILLIN. [Concomitant]
     Active Substance: AMOXICILLIN
     Indication: ANTIBIOTIC THERAPY
     Dosage: 1 DAY
     Route: 065
     Dates: start: 20161122

REACTIONS (3)
  - Exposure during pregnancy [Unknown]
  - Drug ineffective for unapproved indication [Unknown]
  - Abdominal discomfort [Recovering/Resolving]
